FAERS Safety Report 23827278 (Version 1)
Quarter: 2024Q2

REPORT INFORMATION
  Report Type: Spontaneous
  Country: CA (occurrence: CA)
  Receive Date: 20240507
  Receipt Date: 20240507
  Transmission Date: 20240716
  Serious: Yes (Life-Threatening, Disabling, Other)
  Sender: FDA-Public Use
  Company Number: CA-TEVA-VS-3194307

PATIENT
  Age: 49 Year
  Sex: Female
  Weight: 64 kg

DRUGS (5)
  1. TRAZODONE [Suspect]
     Active Substance: TRAZODONE HYDROCHLORIDE
     Indication: Insomnia
     Route: 048
  2. TRAZODONE [Suspect]
     Active Substance: TRAZODONE HYDROCHLORIDE
     Indication: Insomnia
     Route: 048
  3. TRAZODONE [Suspect]
     Active Substance: TRAZODONE HYDROCHLORIDE
     Indication: Insomnia
     Route: 048
  4. CANNABIS SATIVA SEED OIL\HERBALS [Concomitant]
     Active Substance: CANNABIS SATIVA SEED OIL\HERBALS
     Indication: Product used for unknown indication
     Route: 065
  5. DILTIAZEM [Concomitant]
     Active Substance: DILTIAZEM
     Indication: Product used for unknown indication
     Dosage: DOSE FORM: CAPSULE, SUSTAINED-RELEASE
     Route: 065

REACTIONS (35)
  - Anxiety [Not Recovered/Not Resolved]
  - Arthralgia [Not Recovered/Not Resolved]
  - Asthenia [Not Recovered/Not Resolved]
  - Burning sensation [Not Recovered/Not Resolved]
  - Diarrhoea [Not Recovered/Not Resolved]
  - Discomfort [Not Recovered/Not Resolved]
  - Disturbance in attention [Not Recovered/Not Resolved]
  - Dyspnoea [Not Recovered/Not Resolved]
  - Insomnia [Not Recovered/Not Resolved]
  - Mast cell activation syndrome [Not Recovered/Not Resolved]
  - Memory impairment [Not Recovered/Not Resolved]
  - Muscle spasms [Not Recovered/Not Resolved]
  - Muscle twitching [Not Recovered/Not Resolved]
  - Myalgia [Not Recovered/Not Resolved]
  - Neuralgia [Not Recovered/Not Resolved]
  - Neuroleptic malignant syndrome [Not Recovered/Not Resolved]
  - Paraesthesia [Not Recovered/Not Resolved]
  - Paranoia [Not Recovered/Not Resolved]
  - Post-acute COVID-19 syndrome [Not Recovered/Not Resolved]
  - Pruritus [Not Recovered/Not Resolved]
  - Pyrexia [Not Recovered/Not Resolved]
  - Rash [Not Recovered/Not Resolved]
  - Restlessness [Not Recovered/Not Resolved]
  - Seizure [Not Recovered/Not Resolved]
  - Serotonin syndrome [Not Recovered/Not Resolved]
  - Tremor [Not Recovered/Not Resolved]
  - Urticaria [Not Recovered/Not Resolved]
  - Weight decreased [Not Recovered/Not Resolved]
  - Fatigue [Not Recovered/Not Resolved]
  - Fear of death [Not Recovered/Not Resolved]
  - Formication [Not Recovered/Not Resolved]
  - Hallucination [Not Recovered/Not Resolved]
  - Heart rate increased [Not Recovered/Not Resolved]
  - Hyperhidrosis [Not Recovered/Not Resolved]
  - Hypoaesthesia [Not Recovered/Not Resolved]
